FAERS Safety Report 19793732 (Version 2)
Quarter: 2021Q3

REPORT INFORMATION
  Report Type: Report from Study
  Country: TR (occurrence: TR)
  Receive Date: 20210906
  Receipt Date: 20210908
  Transmission Date: 20211014
  Serious: Yes (Other)
  Sender: FDA-Public Use
  Company Number: TR-UCBSA-2021040950

PATIENT

DRUGS (1)
  1. CERTOLIZUMAB PEGOL AXSPA [Suspect]
     Active Substance: CERTOLIZUMAB PEGOL
     Indication: AXIAL SPONDYLOARTHRITIS
     Dosage: UNKNOWN DOSE AND FREQUENCY

REACTIONS (3)
  - Surgery [Unknown]
  - Drug ineffective [Unknown]
  - Adverse event [Unknown]
